FAERS Safety Report 5130641-8 (Version None)
Quarter: 2006Q4

REPORT INFORMATION
  Report Type: 
  Country: None (occurrence: None)
  Receive Date: 20061013
  Receipt Date: 20060928
  Transmission Date: 20070319
  Serious: Yes (Hospitalization)
  Sender: FDA-Public Use
  Company Number: US200609000085

PATIENT
  Sex: Female

DRUGS (1)
  1. HUMATROPE [Suspect]
     Indication: GROWTH HORMONE DEFICIENCY
     Dosage: 1.2 MG, EACH EVENING, AT BED TIME
     Dates: start: 20050722, end: 20050825

REACTIONS (3)
  - GENERALISED OEDEMA [None]
  - PROTEIN TOTAL ABNORMAL [None]
  - PULMONARY OEDEMA [None]
